FAERS Safety Report 23316366 (Version 3)
Quarter: 2024Q2

REPORT INFORMATION
  Report Type: Spontaneous
  Country: US (occurrence: None)
  Receive Date: 20231219
  Receipt Date: 20240509
  Transmission Date: 20240716
  Serious: Yes (Other)
  Sender: FDA-Public Use
  Company Number: US-ROCHE-3362948

PATIENT
  Age: 40 Year
  Sex: Male

DRUGS (2)
  1. HEMLIBRA [Suspect]
     Active Substance: EMICIZUMAB-KXWH
     Indication: Factor VIII deficiency
     Dosage: 105 MG/ 0.7 ML
     Route: 058
     Dates: start: 20210111
  2. HEMLIBRA [Suspect]
     Active Substance: EMICIZUMAB-KXWH
     Indication: Haemarthrosis
     Dosage: 105 MG/ 0.7 ML
     Route: 058
     Dates: start: 202303

REACTIONS (3)
  - Haemorrhage [Not Recovered/Not Resolved]
  - Procedural haemorrhage [Unknown]
  - Fall [Unknown]

NARRATIVE: CASE EVENT DATE: 20240104
